FAERS Safety Report 4764855-3 (Version None)
Quarter: 2005Q3

REPORT INFORMATION
  Report Type: 
  Country: None (occurrence: None)
  Receive Date: 20050907
  Receipt Date: 20050823
  Transmission Date: 20060218
  Serious: Yes (Hospitalization, Other)
  Sender: FDA-Public Use
  Company Number: USA-2004-0014921

PATIENT
  Age: 61 Year
  Sex: Male
  Weight: 77.1 kg

DRUGS (12)
  1. OXYCONTIN [Suspect]
     Indication: PAIN
     Dosage: SEE IMAGE
  2. SENOKOT [Concomitant]
  3. PREDNISONE [Concomitant]
  4. METHOTREXATE [Concomitant]
  5. ZANTAC [Concomitant]
  6. CELEBREX [Concomitant]
  7. VICODIN [Concomitant]
  8. REMICADE [Concomitant]
  9. AZULFIDINE [Concomitant]
  10. NORVASC [Concomitant]
  11. HYDROCODONE [Concomitant]
  12. FLEXERIL [Concomitant]

REACTIONS (46)
  - ABDOMINAL DISCOMFORT [None]
  - ABDOMINAL PAIN [None]
  - ACTINIC KERATOSIS [None]
  - ANAEMIA MACROCYTIC [None]
  - ANXIETY [None]
  - ARRHYTHMIA [None]
  - ARTHRALGIA [None]
  - BACK PAIN [None]
  - CELLULITIS [None]
  - CHEST PAIN [None]
  - COAGULOPATHY [None]
  - CONDITION AGGRAVATED [None]
  - CONSTIPATION [None]
  - DEEP VEIN THROMBOSIS [None]
  - DELUSIONAL DISORDER, UNSPECIFIED TYPE [None]
  - DIVERTICULITIS [None]
  - DRUG DEPENDENCE [None]
  - DRUG WITHDRAWAL SYNDROME [None]
  - DYSPNOEA [None]
  - EJACULATION DISORDER [None]
  - ERYTHEMA [None]
  - FLAT AFFECT [None]
  - INADEQUATE ANALGESIA [None]
  - INGUINAL HERNIA [None]
  - JOINT RANGE OF MOTION DECREASED [None]
  - JOINT SWELLING [None]
  - LENTIGO [None]
  - LIVER FUNCTION TEST ABNORMAL [None]
  - MUSCLE SPASMS [None]
  - NAUSEA [None]
  - NOCTURIA [None]
  - OBSESSIVE-COMPULSIVE DISORDER [None]
  - OCCULT BLOOD POSITIVE [None]
  - OEDEMA PERIPHERAL [None]
  - OESOPHAGEAL CANDIDIASIS [None]
  - OSTEOMYELITIS [None]
  - PAIN [None]
  - PAIN IN EXTREMITY [None]
  - PANIC ATTACK [None]
  - PARANOIA [None]
  - SKIN LESION [None]
  - SKIN NODULE [None]
  - SUPRAVENTRICULAR EXTRASYSTOLES [None]
  - URINARY HESITATION [None]
  - VENTRICULAR EXTRASYSTOLES [None]
  - WEIGHT DECREASED [None]
